FAERS Safety Report 6921161-6 (Version None)
Quarter: 2010Q3

REPORT INFORMATION
  Report Type: 
  Country: None (occurrence: None)
  Receive Date: 20100812
  Receipt Date: 20100809
  Transmission Date: 20110219
  Serious: Yes (Other)
  Sender: FDA-Public Use
  Company Number: US-PFIZER INC-2010049547

PATIENT
  Sex: Female

DRUGS (1)
  1. CHANTIX [Suspect]
     Dosage: 1 MG, 2X/DAY

REACTIONS (5)
  - HALLUCINATION [None]
  - MUSCLE SPASMS [None]
  - NIGHTMARE [None]
  - PAIN IN EXTREMITY [None]
  - SKIN EXFOLIATION [None]
